FAERS Safety Report 8227896-X (Version None)
Quarter: 2012Q1

REPORT INFORMATION
  Report Type: 
  Country: None (occurrence: None)
  Receive Date: 20120322
  Receipt Date: 20120218
  Transmission Date: 20120608
  Serious: Yes (Hospitalization)
  Sender: FDA-Public Use
  Company Number: US-ROCHE-1051080

PATIENT
  Age: 59 Year
  Sex: Female

DRUGS (4)
  1. CARBOPLATIN [Suspect]
     Indication: FALLOPIAN TUBE CANCER
     Dosage: 6 AUC
     Route: 042
     Dates: start: 20110701
  2. VELIPARIB [Suspect]
     Indication: FALLOPIAN TUBE CANCER
     Dosage: ON DAYS 1-21
     Route: 048
     Dates: start: 20110701
  3. PACLITAXEL [Suspect]
     Indication: FALLOPIAN TUBE CANCER
     Route: 042
     Dates: start: 20110701
  4. AVASTIN [Suspect]
     Indication: FALLOPIAN TUBE CANCER
     Dosage: LAST DOSE BEFORE SAE: 28/DEC/2011
     Route: 042
     Dates: start: 20110701

REACTIONS (6)
  - HEADACHE [None]
  - VISION BLURRED [None]
  - HYPERTENSION [None]
  - CEREBROVASCULAR ACCIDENT [None]
  - VISUAL FIELD DEFECT [None]
  - INADEQUATE ANALGESIA [None]
